FAERS Safety Report 23515486 (Version 2)
Quarter: 2024Q1

REPORT INFORMATION
  Report Type: Spontaneous
  Country: EG (occurrence: EG)
  Receive Date: 20240213
  Receipt Date: 20240304
  Transmission Date: 20240410
  Serious: Yes (Other)
  Sender: FDA-Public Use
  Company Number: EG-NOVOPROD-1170616

PATIENT
  Age: 444 Month
  Sex: Male

DRUGS (3)
  1. INSULIN HUMAN [Suspect]
     Active Substance: INSULIN HUMAN
     Indication: Type 1 diabetes mellitus
     Dosage: 15 U OR 10 U/DAY (MORE OR LESS ACCORDING TO HIS HEALTH CONDITION)(STARTED 7 OR 9 YEARS AGO)
     Route: 058
     Dates: start: 2003
  2. LANTUS [Concomitant]
     Active Substance: INSULIN GLARGINE
     Indication: Diabetes mellitus
     Dosage: 20 IU, QD
     Dates: start: 202011
  3. ASPIRIN [Concomitant]
     Active Substance: ASPIRIN
     Indication: Prophylaxis
     Dosage: 81 MG, BID
     Dates: start: 202011

REACTIONS (5)
  - Diabetic foot [Recovered/Resolved]
  - Cardiac disorder [Not Recovered/Not Resolved]
  - Increased insulin requirement [Unknown]
  - Hyperglycaemia [Not Recovered/Not Resolved]
  - Drug ineffective [Unknown]

NARRATIVE: CASE EVENT DATE: 20201103
